FAERS Safety Report 6079251-9 (Version None)
Quarter: 2009Q1

REPORT INFORMATION
  Report Type: 
  Country: None (occurrence: None)
  Receive Date: 20090216
  Receipt Date: 20090205
  Transmission Date: 20090719
  Serious: Yes (Other)
  Sender: FDA-Public Use
  Company Number: PHHO2009CA01028

PATIENT
  Sex: Female

DRUGS (4)
  1. TASIGNA [Suspect]
     Indication: CHRONIC MYELOID LEUKAEMIA
     Dosage: 400MG DAILY
     Route: 048
     Dates: start: 20060920, end: 20080929
  2. TASIGNA [Suspect]
     Dosage: NO TREATMENT
     Dates: start: 20080930
  3. TASIGNA [Suspect]
     Dosage: 400 MG, QD
     Route: 048
     Dates: end: 20081020
  4. DASATINIB [Suspect]
     Dosage: UNK
     Dates: start: 20081020, end: 20081024

REACTIONS (6)
  - ABDOMINAL DISTENSION [None]
  - ALOPECIA [None]
  - ANXIETY [None]
  - DYSPNOEA [None]
  - FALL [None]
  - TACHYARRHYTHMIA [None]
